FAERS Safety Report 9528173 (Version 1)
Quarter: 2013Q1

REPORT INFORMATION
  Report Type: Spontaneous
  Country: US (occurrence: None)
  Receive Date: 20130318
  Receipt Date: 20130318
  Transmission Date: 20140127
  Serious: Yes (Other)
  Sender: FDA-Public Use
  Company Number: 163-21660-11100679

PATIENT
  Age: 62 Year
  Sex: Female
  Weight: 78.02 kg

DRUGS (10)
  1. ABRAXANE [Suspect]
     Indication: BREAST CANCER METASTATIC
     Dosage: INJ
     Dates: start: 201103
  2. FENTANYL (FENTANYL) (POULTICE) [Concomitant]
  3. KCL (POTASSIUM CHLORIDE) [Concomitant]
  4. CARVEDILOL (CARVEDILOL) [Concomitant]
  5. DEXLANSOPRAZOLE (DEXLANSOPRAZOLE) UNKNOWN [Concomitant]
  6. DULOXETINE (DULOXETINE) UNKNOWN [Concomitant]
  7. PRAVASTATIN (PRAVASTATIN) (UNKNOWN) [Concomitant]
  8. TOPIRAMATE (TOPIRAMATE) (UNIKNOWN) [Concomitant]
  9. TRAMADOL (TRAMADOL) (UNKNOWN) [Concomitant]
  10. METANX (METANX) (UNKNOWN) [Concomitant]

REACTIONS (2)
  - Dyspnoea [None]
  - Oxygen saturation decreased [None]
